FAERS Safety Report 7122352-4 (Version None)
Quarter: 2010Q4

REPORT INFORMATION
  Report Type: 
  Country: None (occurrence: None)
  Receive Date: 20101122
  Receipt Date: 20101122
  Transmission Date: 20110411
  Serious: Yes (Other)
  Sender: FDA-Public Use
  Company Number: None

PATIENT
  Sex: Female
  Weight: 61 kg

DRUGS (8)
  1. IXABEPILONE [Suspect]
     Indication: BREAST CANCER
     Dosage: 20MG/M2 IV WEEKLY
     Route: 042
     Dates: start: 20101102, end: 20101109
  2. VORINOSTAT [Suspect]
     Indication: BREAST CANCER
     Dosage: 300MG DAILY
     Dates: start: 20101101, end: 20101107
  3. VORINOSTAT [Suspect]
     Indication: BREAST CANCER
     Dosage: 300MG DAILY
     Dates: start: 20101115
  4. NEURONTIN [Concomitant]
  5. PRILOSEC [Concomitant]
  6. COLACE [Concomitant]
  7. ZOFRAN [Concomitant]
  8. MORPHINE SULFATE [Concomitant]

REACTIONS (1)
  - BLOOD POTASSIUM DECREASED [None]
